FAERS Safety Report 10253484 (Version 1)
Quarter: 2014Q2

REPORT INFORMATION
  Report Type: Other
  Country: AU (occurrence: AU)
  Receive Date: 20140623
  Receipt Date: 20140623
  Transmission Date: 20141212
  Serious: Yes (Hospitalization)
  Sender: FDA-Public Use
  Company Number: AU-BRISTOL-MYERS SQUIBB COMPANY-21037833

PATIENT
  Age: 66 Year
  Sex: Female

DRUGS (6)
  1. METFORMIN HCL [Suspect]
     Indication: TYPE 2 DIABETES MELLITUS
  2. HYDROCHLOROTHIAZIDE [Suspect]
  3. GLICLAZIDE [Suspect]
     Indication: TYPE 2 DIABETES MELLITUS
  4. ASPIRIN [Suspect]
  5. ATORVASTATIN [Suspect]
  6. RAMIPRIL [Suspect]

REACTIONS (9)
  - Malaise [Recovered/Resolved]
  - Hypophagia [Recovered/Resolved]
  - Pulseless electrical activity [Recovered/Resolved]
  - Intestinal ischaemia [Recovered/Resolved]
  - Shock [Recovered/Resolved]
  - Renal failure acute [Recovered/Resolved]
  - Dehydration [Recovered/Resolved]
  - Lactic acidosis [Recovered/Resolved]
  - Diarrhoea [Recovered/Resolved]
